FAERS Safety Report 5445735-7 (Version None)
Quarter: 2007Q3

REPORT INFORMATION
  Report Type: 
  Country: None (occurrence: None)
  Receive Date: 20070904
  Receipt Date: 20070824
  Transmission Date: 20080115
  Serious: Yes (Congenital Anomaly, Other)
  Sender: FDA-Public Use
  Company Number: 015236

PATIENT
  Sex: Female
  Weight: 2.6 kg

DRUGS (4)
  1. DIDANOSINE [Suspect]
     Indication: DRUG EXPOSURE DURING PREGNANCY
     Dosage: 400 MG, TRANSPLACENTAL
     Route: 064
     Dates: end: 20070517
  2. ZIDOVUDINE [Suspect]
     Indication: DRUG EXPOSURE DURING PREGNANCY
     Dosage: 600 MG/DAY, TRANSPLAENTAL
     Route: 064
     Dates: end: 20070517
  3. KALETRA [Suspect]
     Indication: DRUG EXPOSURE DURING PREGNANCY
     Dosage: 4 TABLET, TRANSPLACENTAL
     Route: 064
     Dates: end: 20070517
  4. ZIDOVUDINE [Suspect]
     Dosage: 2 MG/KG, THEN 1MG/KG, TRANSPLACENTAL
     Route: 064

REACTIONS (9)
  - ATRIOVENTRICULAR BLOCK COMPLETE [None]
  - CARDIAC FAILURE CONGESTIVE [None]
  - COARCTATION OF THE AORTA [None]
  - DRUG EXPOSURE DURING PREGNANCY [None]
  - HEAT RASH [None]
  - METABOLIC ACIDOSIS [None]
  - NEONATAL DISORDER [None]
  - PATENT DUCTUS ARTERIOSUS [None]
  - VENTRICULAR SEPTAL DEFECT [None]
